FAERS Safety Report 7710817-3 (Version None)
Quarter: 2011Q3

REPORT INFORMATION
  Report Type: 
  Country: None (occurrence: None)
  Receive Date: 20110825
  Receipt Date: 20110823
  Transmission Date: 20111222
  Serious: Yes (Hospitalization, Other)
  Sender: FDA-Public Use
  Company Number: PT-ABBOTT-11P-130-0844252-00

PATIENT
  Age: 46 Year
  Sex: Male

DRUGS (10)
  1. ENBREL [Suspect]
  2. HUMIRA [Suspect]
     Indication: SERONEGATIVE ARTHRITIS
     Dates: start: 20101201, end: 20110301
  3. UNSPECIFIED ANTI-INFLAMMATORY DRUG [Concomitant]
     Indication: PRODUCT USED FOR UNKNOWN INDICATION
  4. ALLOPURINOL [Concomitant]
     Indication: PRODUCT USED FOR UNKNOWN INDICATION
  5. HUMIRA [Suspect]
  6. GOLIMUMAB [Suspect]
     Indication: LEUKOCYTE ANTIGEN B-27 POSITIVE
  7. CYCLOSPORINE [Concomitant]
     Indication: PRODUCT USED FOR UNKNOWN INDICATION
  8. VOLTAREN [Concomitant]
     Indication: PRODUCT USED FOR UNKNOWN INDICATION
  9. GOLIMUMAB [Suspect]
     Indication: SERONEGATIVE ARTHRITIS
     Dosage: UNKNOWN DAILY DOSE
     Route: 065
     Dates: start: 20110501, end: 20110713
  10. ENBREL [Suspect]
     Indication: LEUKOCYTE ANTIGEN B-27 POSITIVE
     Dates: start: 20060101, end: 20101001

REACTIONS (3)
  - PROGRESSIVE MULTIFOCAL LEUKOENCEPHALOPATHY [None]
  - DRUG INEFFECTIVE [None]
  - MONOPARESIS [None]
